FAERS Safety Report 9190737 (Version 2)
Quarter: 2013Q2

REPORT INFORMATION
  Report Type: Spontaneous
  Country: CA (occurrence: CA)
  Receive Date: 20130326
  Receipt Date: 20130412
  Transmission Date: 20140414
  Serious: Yes (Other)
  Sender: FDA-Public Use
  Company Number: PHHY2013CA027919

PATIENT
  Age: 37 Year
  Sex: Male

DRUGS (1)
  1. GILENYA [Suspect]
     Indication: RELAPSING-REMITTING MULTIPLE SCLEROSIS
     Dosage: 0.5 MG, QD
     Route: 048
     Dates: start: 20130306

REACTIONS (7)
  - Fall [Unknown]
  - Somnolence [Unknown]
  - Nasopharyngitis [Unknown]
  - Malaise [Unknown]
  - Vomiting [Unknown]
  - Pyrexia [Unknown]
  - Dizziness [Unknown]
